FAERS Safety Report 25916937 (Version 1)
Quarter: 2025Q4

REPORT INFORMATION
  Report Type: Spontaneous
  Country: RU (occurrence: RU)
  Receive Date: 20251014
  Receipt Date: 20251014
  Transmission Date: 20260118
  Serious: Yes (Other)
  Sender: ROCHE
  Company Number: RU-ROCHE-10000409190

PATIENT
  Age: 37 Year
  Sex: Female

DRUGS (7)
  1. TRASTUZUMAB [Suspect]
     Active Substance: TRASTUZUMAB
     Indication: Breast cancer stage III
     Route: 065
     Dates: start: 20240619
  2. PERTUZUMAB [Suspect]
     Active Substance: PERTUZUMAB
     Indication: Breast cancer stage III
     Dosage: 21-DAY CYCLE
     Route: 065
     Dates: start: 20240619
  3. ADO-TRASTUZUMAB EMTANSINE [Suspect]
     Active Substance: ADO-TRASTUZUMAB EMTANSINE
     Indication: Breast cancer stage III
     Dosage: 14 CYCLES
     Route: 065
     Dates: start: 202411, end: 202509
  4. DOCETAXEL [Suspect]
     Active Substance: DOCETAXEL
     Indication: Breast cancer stage III
     Route: 065
     Dates: start: 20240619
  5. CARBOPLATIN [Suspect]
     Active Substance: CARBOPLATIN
     Indication: Breast cancer stage III
     Dosage: AUC 6 ON DAY 1
     Route: 065
     Dates: start: 20240619
  6. TAMOXIFEN [Suspect]
     Active Substance: TAMOXIFEN
     Indication: Breast cancer stage III
     Route: 065
     Dates: start: 202411
  7. GONADORELIN [Suspect]
     Active Substance: GONADORELIN
     Indication: Breast cancer stage III
     Route: 065
     Dates: start: 202411

REACTIONS (1)
  - Thrombocytopenia [Unknown]
